FAERS Safety Report 8252137-7 (Version None)
Quarter: 2012Q2

REPORT INFORMATION
  Report Type: 
  Country: None (occurrence: None)
  Receive Date: 20120402
  Receipt Date: 20110412
  Transmission Date: 20120825
  Serious: No
  Sender: FDA-Public Use
  Company Number: US-ABBOTT-11P-163-0804432-00

PATIENT
  Sex: Male
  Weight: 111.36 kg

DRUGS (10)
  1. ACETYLSALICYLIC ACID [Concomitant]
     Indication: CARDIAC DISORDER
     Dosage: DAILY DOSE:  UNKNOWN, AS USED: 81 MILLIGRAMS
     Route: 065
  2. BUPIVACAINE [Concomitant]
     Indication: SPINAL DISORDER
     Dosage: DAILY DOSE:  UNKNOWN
     Route: 065
  3. NORFLEX [Concomitant]
     Indication: CHEST PAIN
     Dosage: DAILY DOSE:  UNKNOWN
     Route: 065
  4. FENTANYL [Concomitant]
     Indication: SPINAL DISORDER
     Dosage: DAILY DOSE:  UNKNOWN
     Route: 065
  5. CLONAZEPAM [Concomitant]
     Indication: RESTLESS LEGS SYNDROME
     Dosage: DAILY DOSE:  UNKNOWN
     Route: 065
  6. TESTOSTERONE [Suspect]
     Dosage: DAILY DOSE:  UNKNOWN
     Route: 065
     Dates: end: 20101001
  7. METOPROLOL [Concomitant]
     Indication: HYPERTENSION
     Dosage: DAILY DOSE:  UNKNOWN
     Route: 065
  8. ZOLPIDEM TARTRATE [Concomitant]
     Indication: SLEEP DISORDER
     Dosage: DAILY DOSE:  UNKNOWN
     Route: 065
  9. TESTOSTERONE [Suspect]
     Indication: ANDROGEN REPLACEMENT THERAPY
     Dosage: DAILY DOSE: 6.25 GRAM(S) (5 PUMPS DAILY), VIA PUMP.
     Route: 062
     Dates: start: 20101001
  10. MORPHINE [Concomitant]
     Indication: SPINAL DISORDER
     Dosage: DAILY DOSE:  UNKNOWN
     Route: 065

REACTIONS (3)
  - APPLICATION SITE URTICARIA [None]
  - APPLICATION SITE PRURITUS [None]
  - INSOMNIA [None]
